FAERS Safety Report 4344376-2 (Version None)
Quarter: 2004Q2

REPORT INFORMATION
  Report Type: 
  Country: None (occurrence: None)
  Receive Date: 20040419
  Receipt Date: 20040414
  Transmission Date: 20050107
  Serious: Yes (Death)
  Sender: FDA-Public Use
  Company Number: USA-2003-0006467

PATIENT
  Age: 40 Year
  Sex: Male

DRUGS (12)
  1. OXYCONTIN [Suspect]
     Indication: PAIN
     Dosage: 80 MG
  2. OXYCODONE HCL [Suspect]
     Indication: PAIN
  3. HYDROCODONE BITARTRATE (SIMILAR TO NDA 59,175) (HYDROCODONE  BITARTRAT [Suspect]
  4. DIHYDROCODEINE/CAFFEINE/ACETAMINOPHEN (SIMILAR TO ANDA 88-584) (PARACE [Suspect]
  5. DIAZEPAM [Suspect]
  6. CAFFEINE (CAFFEINE) [Suspect]
  7. ACETAMINOPHEN [Suspect]
  8. NICOTINE [Suspect]
  9. OXAZEPAM [Suspect]
  10. TEMAZEPAM [Suspect]
  11. XANAX [Concomitant]
  12. PAXIL [Concomitant]

REACTIONS (5)
  - DRUG TOXICITY [None]
  - MEDICATION ERROR [None]
  - PULMONARY CONGESTION [None]
  - PULMONARY OEDEMA [None]
  - SELF-MEDICATION [None]
